FAERS Safety Report 14626315 (Version 1)
Quarter: 2018Q1

REPORT INFORMATION
  Report Type: Spontaneous
  Country: GB (occurrence: GB)
  Receive Date: 20180312
  Receipt Date: 20180312
  Transmission Date: 20180509
  Serious: Yes (Other)
  Sender: FDA-Public Use
  Company Number: GB-PFIZER INC-2018097081

PATIENT
  Age: 19 Year
  Sex: Male

DRUGS (3)
  1. XANAX [Suspect]
     Active Substance: ALPRAZOLAM
     Dosage: 1 DF, A TABLET A NIGHT
     Dates: start: 2017
  2. XANAX [Suspect]
     Active Substance: ALPRAZOLAM
     Dosage: 2 DF, A TABLET A NIGHT
  3. XANAX [Suspect]
     Active Substance: ALPRAZOLAM
     Dosage: HALF A TABLET A NIGHT
     Dates: end: 2017

REACTIONS (14)
  - Euphoric mood [Unknown]
  - Loss of consciousness [Unknown]
  - Drug dependence [Unknown]
  - Abdominal pain upper [Unknown]
  - Cold sweat [Unknown]
  - Anxiety [Unknown]
  - Insomnia [Unknown]
  - Drug abuse [Unknown]
  - Amnesia [Unknown]
  - Paranoia [Unknown]
  - Feeling abnormal [Unknown]
  - Feeling hot [Unknown]
  - Tremor [Unknown]
  - Prescription drug used without a prescription [Unknown]
